FAERS Safety Report 6532393-3 (Version None)
Quarter: 2010Q1

REPORT INFORMATION
  Report Type: 
  Country: None (occurrence: None)
  Receive Date: 20100108
  Receipt Date: 20100104
  Transmission Date: 20100710
  Serious: Yes (Hospitalization, Other)
  Sender: FDA-Public Use
  Company Number: US-AMGEN-QUU358867

PATIENT
  Sex: Female

DRUGS (18)
  1. ENBREL [Suspect]
     Indication: RHEUMATOID ARTHRITIS
     Route: 058
     Dates: start: 20030505
  2. METHOTREXATE [Concomitant]
  3. AMBIEN [Concomitant]
  4. PREVACID [Concomitant]
  5. FOLIC ACID [Concomitant]
  6. INDERAL [Concomitant]
  7. VITAMIN D [Concomitant]
  8. BONIVA [Concomitant]
  9. CALCITRIOL [Concomitant]
  10. DILTIAZEM [Concomitant]
  11. ISOSORBIDE [Concomitant]
  12. ULTRACET [Concomitant]
  13. SYNTHROID [Concomitant]
  14. EVOXAC [Concomitant]
  15. PATANOL [Concomitant]
  16. DARVOCET-N 100 [Concomitant]
  17. NITROGLYCERIN [Concomitant]
     Route: 060
  18. ALPRAZOLAM [Concomitant]

REACTIONS (20)
  - ANAEMIA [None]
  - APPENDICECTOMY [None]
  - ARTHRALGIA [None]
  - CHOLECYSTECTOMY [None]
  - DRUG INEFFECTIVE [None]
  - FALL [None]
  - FATIGUE [None]
  - FIBROMYALGIA [None]
  - INTERVERTEBRAL DISC DEGENERATION [None]
  - INTESTINAL OBSTRUCTION [None]
  - JOINT SWELLING [None]
  - MEDICAL DEVICE COMPLICATION [None]
  - MIGRAINE [None]
  - MUSCULOSKELETAL STIFFNESS [None]
  - OSTEOPENIA [None]
  - PEPTIC ULCER [None]
  - PERITONITIS [None]
  - RED BLOOD CELL COUNT DECREASED [None]
  - SJOGREN'S SYNDROME [None]
  - UPPER LIMB FRACTURE [None]
